FAERS Safety Report 9122812 (Version 1)
Quarter: 2013Q1

REPORT INFORMATION
  Report Type: Spontaneous
  Country: US (occurrence: None)
  Receive Date: 20130225
  Receipt Date: 20130225
  Transmission Date: 20140127
  Serious: Yes (Hospitalization, Disabling)
  Sender: FDA-Public Use
  Company Number: None

PATIENT
  Age: 67 Year
  Sex: Male
  Weight: 60.33 kg

DRUGS (1)
  1. SEROQUEL [Suspect]
     Indication: PSYCHOTIC DISORDER
     Dates: start: 20130107, end: 20130117

REACTIONS (5)
  - Asthenia [None]
  - Gait disturbance [None]
  - Dysstasia [None]
  - Parkinson^s disease [None]
  - Incontinence [None]
